FAERS Safety Report 7081010-5 (Version None)
Quarter: 2010Q4

REPORT INFORMATION
  Report Type: 
  Country: None (occurrence: None)
  Receive Date: 20101103
  Receipt Date: 20101026
  Transmission Date: 20110411
  Serious: Yes (Hospitalization)
  Sender: FDA-Public Use
  Company Number: JP-GENZYME-THYM-1002006

PATIENT
  Age: 71 Year
  Sex: Male

DRUGS (2)
  1. THYMOGLOBULIN [Suspect]
     Indication: APLASTIC ANAEMIA
     Dosage: UNK
     Route: 042
     Dates: start: 20100823, end: 20100827
  2. CYCLOSPORINE [Concomitant]
     Route: 048

REACTIONS (1)
  - INTERSTITIAL LUNG DISEASE [None]
